FAERS Safety Report 9115556 (Version 1)
Quarter: 2013Q1

REPORT INFORMATION
  Report Type: Spontaneous
  Country: US (occurrence: US)
  Receive Date: 20130225
  Receipt Date: 20130225
  Transmission Date: 20140127
  Serious: Yes (Other)
  Sender: FDA-Public Use
  Company Number: US-JNJFOC-20130209364

PATIENT
  Sex: Male

DRUGS (7)
  1. XARELTO [Suspect]
     Indication: CEREBROVASCULAR ACCIDENT PROPHYLAXIS
     Route: 048
     Dates: start: 2012
  2. XARELTO [Suspect]
     Indication: ATRIAL FIBRILLATION
     Route: 048
     Dates: start: 2012
  3. FISH OIL [Concomitant]
     Indication: MEDICAL DIET
     Route: 048
  4. LISINOPRIL HCTZ [Concomitant]
     Indication: HYPERTENSION
     Dosage: 10 OR 12.5 MG ONCE DAILY
     Route: 048
  5. TAMSULOSIN [Concomitant]
     Indication: PROSTATIC DISORDER
     Route: 048
  6. METOPROLOL [Concomitant]
     Indication: HYPERTENSION
     Route: 048
  7. COSAMIN ASU [Concomitant]
     Indication: MEDICAL DIET
     Route: 048

REACTIONS (1)
  - Pre-existing disease [Recovering/Resolving]
